FAERS Safety Report 5452992-X (Version None)
Quarter: 2007Q3

REPORT INFORMATION
  Report Type: 
  Country: None (occurrence: None)
  Receive Date: 20070914
  Receipt Date: 20070911
  Transmission Date: 20080115
  Serious: Yes (Other)
  Sender: FDA-Public Use
  Company Number: US-SHR-US-2007-034161

PATIENT
  Age: 42 Year
  Sex: Female
  Weight: 59 kg

DRUGS (3)
  1. YAZ [Suspect]
     Indication: OVARIAN CYST
     Dosage: 1 TAB(S), 1X/DAY
     Route: 048
     Dates: start: 20070501, end: 20070801
  2. MACRODANTIN [Concomitant]
     Dosage: 100 MG, 1X/DAY
  3. MACRODANTIN [Concomitant]
     Dosage: 50 MG, AS REQ'D

REACTIONS (5)
  - CYST [None]
  - CYST RUPTURE [None]
  - LOSS OF LIBIDO [None]
  - MIGRAINE [None]
  - URINARY TRACT INFECTION [None]
